FAERS Safety Report 12608147 (Version 1)
Quarter: 2016Q3

REPORT INFORMATION
  Report Type: Spontaneous
  Country: ES (occurrence: ES)
  Receive Date: 20160729
  Receipt Date: 20160729
  Transmission Date: 20161109
  Serious: Yes (Other)
  Sender: FDA-Public Use
  Company Number: ES-PFIZER INC-2016365723

PATIENT
  Age: 2 Day
  Sex: Male
  Weight: 3 kg

DRUGS (1)
  1. VANDRAL RETARD [Suspect]
     Active Substance: VENLAFAXINE HYDROCHLORIDE
     Indication: DEPRESSION
     Dosage: 150 MG, 1X/DAY
     Route: 063
     Dates: start: 20150802, end: 20150810

REACTIONS (3)
  - Jaundice neonatal [Unknown]
  - Exposure during breast feeding [Recovered/Resolved]
  - Somnolence [Recovered/Resolved]

NARRATIVE: CASE EVENT DATE: 201508
